FAERS Safety Report 5779274-0 (Version None)
Quarter: 2008Q2

REPORT INFORMATION
  Report Type: 
  Country: None (occurrence: None)
  Receive Date: 20080619
  Receipt Date: 20080610
  Transmission Date: 20081010
  Serious: Yes (Other)
  Sender: FDA-Public Use
  Company Number: US-JNJFOC-20080406262

PATIENT
  Sex: Male

DRUGS (5)
  1. MOTRIN [Suspect]
     Indication: BACK PAIN
     Route: 048
  2. CELEBREX [Suspect]
     Indication: BACK PAIN
     Dosage: ONCE A DAY
     Route: 048
  3. ALEVE [Concomitant]
     Indication: BACK PAIN
     Route: 048
  4. UNSPECIFIED BLOOD PRESSURE MEDICATION [Concomitant]
     Indication: BLOOD PRESSURE
     Route: 048
  5. UNSPECIFIED CHOLESTEROL MEDICATION [Concomitant]
     Indication: BLOOD CHOLESTEROL
     Route: 048

REACTIONS (4)
  - DRUG INEFFECTIVE [None]
  - LIMB INJURY [None]
  - SCIATICA [None]
  - SEDATION [None]
